FAERS Safety Report 10376321 (Version 1)
Quarter: 2014Q3

REPORT INFORMATION
  Report Type: Spontaneous
  Country: SE (occurrence: SE)
  Receive Date: 20140811
  Receipt Date: 20140811
  Transmission Date: 20150326
  Serious: Yes (Hospitalization)
  Sender: FDA-Public Use
  Company Number: SE-PFIZER INC-2014219900

PATIENT
  Age: 91 Year
  Sex: Female

DRUGS (6)
  1. GABAPENTIN. [Suspect]
     Active Substance: GABAPENTIN
     Dates: start: 201405
  2. DOLCONTIN [Suspect]
     Active Substance: MORPHINE
     Dates: start: 201405
  3. WARAN [Concomitant]
     Active Substance: WARFARIN SODIUM
  4. KALCIPOS [Concomitant]
     Active Substance: CALCIUM CARBONATE
  5. CAPTOPRIL. [Concomitant]
     Active Substance: CAPTOPRIL
  6. PREDNISOLONE. [Concomitant]
     Active Substance: PREDNISOLONE

REACTIONS (2)
  - Somnolence [Recovered/Resolved]
  - Fatigue [Recovered/Resolved]

NARRATIVE: CASE EVENT DATE: 20140523
